FAERS Safety Report 23429731 (Version 1)
Quarter: 2024Q1

REPORT INFORMATION
  Report Type: Spontaneous
  Country: US (occurrence: US)
  Receive Date: 20240122
  Receipt Date: 20240122
  Transmission Date: 20240409
  Serious: No
  Sender: FDA-Public Use
  Company Number: US-BoehringerIngelheim-2024-BI-003734

PATIENT

DRUGS (2)
  1. OFEV [Suspect]
     Active Substance: NINTEDANIB
     Indication: Product used for unknown indication
     Dosage: 2 TAB A DAY AS DIRECTED.
  2. OFEV [Suspect]
     Active Substance: NINTEDANIB
     Dosage: 1 TAB A DAY

REACTIONS (1)
  - Drug intolerance [Unknown]
